FAERS Safety Report 10181204 (Version 2)
Quarter: 2014Q2

REPORT INFORMATION
  Report Type: Spontaneous
  Country: US (occurrence: US)
  Receive Date: 20140519
  Receipt Date: 20140519
  Transmission Date: 20141212
  Serious: No
  Sender: FDA-Public Use
  Company Number: US-AMGEN INC.-USASP2014021891

PATIENT
  Age: 73 Year
  Sex: Female
  Weight: 49.9 kg

DRUGS (8)
  1. PROLIA [Suspect]
     Indication: OSTEOPOROSIS POSTMENOPAUSAL
     Dosage: UNK, Q6MO
     Route: 065
     Dates: start: 2012
  2. LEVOTHYROXINE [Concomitant]
     Route: 065
  3. BABY ASPIRIN [Concomitant]
     Route: 065
  4. CITALOPRAM [Concomitant]
     Route: 065
  5. TOPROL [Concomitant]
     Route: 065
  6. SIMVASTATIN [Concomitant]
     Route: 065
  7. CALCIUM PLUS D3 [Concomitant]
     Route: 065
  8. TERBINAFINE HCL [Concomitant]
     Route: 065

REACTIONS (2)
  - Blood pressure increased [Recovering/Resolving]
  - Dizziness [Recovered/Resolved]
